FAERS Safety Report 7859031-1 (Version None)
Quarter: 2011Q3

REPORT INFORMATION
  Report Type: 
  Country: None (occurrence: None)
  Receive Date: 20110923
  Receipt Date: 20100827
  Transmission Date: 20111222
  Serious: Yes (Other)
  Sender: FDA-Public Use
  Company Number: 10-014

PATIENT

DRUGS (1)
  1. NEGATIVE CONTROL SCRATCH [Suspect]
     Indication: SKIN TEST
     Dates: start: 20100315, end: 20100827

REACTIONS (1)
  - THERAPEUTIC RESPONSE UNEXPECTED [None]
